FAERS Safety Report 23032809 (Version 1)
Quarter: 2023Q4

REPORT INFORMATION
  Report Type: Spontaneous
  Country: NL (occurrence: NL)
  Receive Date: 20231005
  Receipt Date: 20231005
  Transmission Date: 20240110
  Serious: Yes (Other)
  Sender: FDA-Public Use
  Company Number: None

PATIENT
  Age: 40 Year
  Sex: Male
  Weight: 92 kg

DRUGS (1)
  1. CISPLATIN [Suspect]
     Active Substance: CISPLATIN
     Indication: Testis cancer
     Dosage: 10-15 X 10  IU/M  BODY SURFACE AREA  ,BRAND NAME NOT SPECIFIED
     Route: 065
     Dates: start: 20230904, end: 20230908

REACTIONS (1)
  - Thrombosis [Recovering/Resolving]
